FAERS Safety Report 12085972 (Version 1)
Quarter: 2016Q1

REPORT INFORMATION
  Report Type: Report from Study
  Country: CA (occurrence: CA)
  Receive Date: 20160217
  Receipt Date: 20160217
  Transmission Date: 20160526
  Serious: Yes (Hospitalization, Other)
  Sender: FDA-Public Use
  Company Number: PHHY2016CA020144

PATIENT
  Age: 44 Year
  Sex: Female

DRUGS (7)
  1. XOLAIR [Suspect]
     Active Substance: OMALIZUMAB
     Indication: CHRONIC SPONTANEOUS URTICARIA
     Dosage: 300 MG, EVERY 4 WEEKS
     Route: 058
     Dates: start: 2011, end: 2012
  2. DOXEPIN [Suspect]
     Active Substance: DOXEPIN
     Indication: URTICARIA
     Dosage: 100 MG, AT NIGHT
     Route: 065
  3. AERIUS [Concomitant]
     Active Substance: DESLORATADINE
     Indication: PRODUCT USED FOR UNKNOWN INDICATION
     Route: 065
  4. REACTINE//CETIRIZINE HYDROCHLORIDE [Concomitant]
     Active Substance: CETIRIZINE HYDROCHLORIDE
     Indication: PRODUCT USED FOR UNKNOWN INDICATION
     Dosage: 20 MG, QID
     Route: 065
  5. DOXEPIN [Suspect]
     Active Substance: DOXEPIN
     Dosage: 50 MG, UNK
     Route: 065
  6. HYDROXYZINE [Suspect]
     Active Substance: HYDROXYZINE\HYDROXYZINE HYDROCHLORIDE
     Indication: PRODUCT USED FOR UNKNOWN INDICATION
     Route: 065
  7. ZOPICLONE [Concomitant]
     Active Substance: ZOPICLONE
     Indication: PRODUCT USED FOR UNKNOWN INDICATION
     Route: 065

REACTIONS (12)
  - Postoperative wound infection [Unknown]
  - Sepsis [Unknown]
  - Dry mouth [Unknown]
  - Gait disturbance [Unknown]
  - Angioedema [Unknown]
  - Peripheral swelling [Unknown]
  - Urticaria [Recovering/Resolving]
  - Somnolence [Unknown]
  - Sedation [Unknown]
  - Feeling abnormal [Unknown]
  - Malaise [Unknown]
  - Pruritus [Unknown]

NARRATIVE: CASE EVENT DATE: 20150507
